FAERS Safety Report 7560190-9 (Version None)
Quarter: 2011Q2

REPORT INFORMATION
  Report Type: 
  Country: None (occurrence: None)
  Receive Date: 20110621
  Receipt Date: 20110603
  Transmission Date: 20111010
  Serious: Yes (Hospitalization)
  Sender: FDA-Public Use
  Company Number: B0698878A

PATIENT
  Age: 54 Year
  Sex: Female

DRUGS (6)
  1. ALTACE [Concomitant]
  2. LIPITOR [Concomitant]
  3. AVANDIA [Suspect]
     Dosage: 4MG TWICE PER DAY
     Route: 048
     Dates: start: 20001201, end: 20051201
  4. NORVASC [Concomitant]
  5. INSULIN [Concomitant]
  6. LAMICTAL [Concomitant]

REACTIONS (4)
  - EYEBALL AVULSION [None]
  - MYOCARDIAL INFARCTION [None]
  - DIABETIC COMPLICATION [None]
  - CEREBROVASCULAR ACCIDENT [None]
